FAERS Safety Report 5484389-0 (Version None)
Quarter: 2007Q4

REPORT INFORMATION
  Report Type: 
  Country: None (occurrence: None)
  Receive Date: 20071012
  Receipt Date: 20071009
  Transmission Date: 20080405
  Serious: Yes (Other)
  Sender: FDA-Public Use
  Company Number: GR-MERCK-0708GRC00004

PATIENT
  Age: 46 Year
  Sex: Female
  Weight: 40 kg

DRUGS (1)
  1. SINGULAIR [Suspect]
     Indication: ASTHMA
     Route: 048
     Dates: start: 20040101, end: 20070521

REACTIONS (1)
  - ALLERGIC GRANULOMATOUS ANGIITIS [None]
